FAERS Safety Report 8307359-3 (Version None)
Quarter: 2012Q2

REPORT INFORMATION
  Report Type: 
  Country: None (occurrence: None)
  Receive Date: 20120424
  Receipt Date: 20120413
  Transmission Date: 20120825
  Serious: Yes (Hospitalization)
  Sender: FDA-Public Use
  Company Number: GB-BRISTOL-MYERS SQUIBB COMPANY-16519183

PATIENT
  Age: 60 Year
  Sex: Female

DRUGS (10)
  1. ABACAVIR [Concomitant]
  2. FLUTICASONE FUROATE [Suspect]
     Indication: LOWER RESPIRATORY TRACT INFECTION
     Route: 055
  3. AMITRIPTYLINE HCL [Concomitant]
  4. LAMIVUDINE [Concomitant]
  5. KALETRA [Suspect]
     Indication: HIV INFECTION
  6. PREDNISOLONE [Suspect]
     Indication: LOWER RESPIRATORY TRACT INFECTION
     Dosage: SHORT COURSES
  7. TRIAMCINOLONE ACETONIDE [Suspect]
     Indication: ARTHRALGIA
     Route: 030
  8. TRAMADOL HCL [Concomitant]
  9. GABAPENTIN [Concomitant]
  10. METHOTREXATE [Concomitant]
     Indication: ARTHROPATHY
     Route: 048

REACTIONS (1)
  - CUSHING'S SYNDROME [None]
